FAERS Safety Report 8056265-0 (Version None)
Quarter: 2011Q4

REPORT INFORMATION
  Report Type: 
  Country: None (occurrence: None)
  Receive Date: 20111220
  Receipt Date: 20110920
  Transmission Date: 20120403
  Serious: Yes (Hospitalization)
  Sender: FDA-Public Use
  Company Number: PHEH2011US02199

PATIENT
  Age: 69 Year
  Sex: 0
  Weight: 103 kg

DRUGS (8)
  1. PREDNISONE TAB [Concomitant]
  2. ACE INHIBITOR NOS (NO INGREDIENTS/SUBSTANCES) [Concomitant]
  3. SIMULECT [Concomitant]
  4. ANTIBIOTICS (NO INGREDIENTS/SUBSTANCES) [Concomitant]
  5. PROGRAF [Concomitant]
  6. SIMULECT [Concomitant]
  7. IMMUNOSUPPRESSANTS (NO INGREDIENTS/SUBSTANCES) [Concomitant]
  8. MYFORTIC [Suspect]
     Indication: RENAL TRANSPLANT
     Dosage: 720 MG, BID, ORAL
     Route: 048
     Dates: start: 20110719

REACTIONS (2)
  - KIDNEY TRANSPLANT REJECTION [None]
  - BLOOD CREATININE INCREASED [None]
